FAERS Safety Report 6110346-7 (Version None)
Quarter: 2009Q1

REPORT INFORMATION
  Report Type: 
  Country: None (occurrence: None)
  Receive Date: 20090310
  Receipt Date: 20090302
  Transmission Date: 20090719
  Serious: Yes (Hospitalization)
  Sender: FDA-Public Use
  Company Number: JP-PFIZER INC-2009178947

PATIENT

DRUGS (10)
  1. NORVASC [Suspect]
     Indication: HYPERTENSION
     Dosage: UNK
     Route: 048
  2. LASIX [Concomitant]
     Dosage: UNK
  3. ACTOS [Concomitant]
     Dosage: UNK
     Route: 048
  4. MINOPEN [Concomitant]
     Dosage: UNK
  5. MAGNESIUM OXIDE [Concomitant]
     Dosage: UNK
     Route: 048
  6. TAKEPRON [Concomitant]
     Dosage: UNK
  7. CONSPIT [Concomitant]
     Dosage: UNK
     Route: 048
  8. RIMATIL [Concomitant]
     Dosage: UNK
     Route: 048
  9. MECOBALAMIN [Concomitant]
     Dosage: UNK
     Route: 048
  10. PREDNISOLONE [Concomitant]
     Dosage: UNK
     Route: 048

REACTIONS (2)
  - MUSCLE ABSCESS [None]
  - PIGMENTATION DISORDER [None]
